FAERS Safety Report 9059412 (Version 2)
Quarter: 2013Q1

REPORT INFORMATION
  Report Type: Spontaneous
  Country: IT (occurrence: IT)
  Receive Date: 20130211
  Receipt Date: 20130311
  Transmission Date: 20140127
  Serious: Yes (Hospitalization)
  Sender: FDA-Public Use
  Company Number: IT-GLAXOSMITHKLINE-B0866479A

PATIENT
  Age: 17 None
  Sex: Female

DRUGS (2)
  1. PANADOL [Suspect]
     Indication: PRODUCT USED FOR UNKNOWN INDICATION
     Dosage: 2500MG PER DAY
     Route: 048
     Dates: start: 20130130, end: 20130130
  2. VENTOLIN [Suspect]
     Indication: PRODUCT USED FOR UNKNOWN INDICATION
     Dosage: 20PUFF PER DAY
     Route: 048
     Dates: start: 20130130, end: 20130130

REACTIONS (9)
  - Overdose [Unknown]
  - Drug abuse [Unknown]
  - Hypokalaemia [Recovering/Resolving]
  - Tachycardia [Recovering/Resolving]
  - Nervousness [Recovering/Resolving]
  - Agitation [Unknown]
  - Headache [Unknown]
  - Tremor [Unknown]
  - Electrocardiogram abnormal [Recovered/Resolved]
